FAERS Safety Report 15610365 (Version 1)
Quarter: 2018Q4

REPORT INFORMATION
  Report Type: Spontaneous
  Country: US (occurrence: US)
  Receive Date: 20181113
  Receipt Date: 20181113
  Transmission Date: 20190205
  Serious: No
  Sender: FDA-Public Use
  Company Number: US-ROCHE-2075475

PATIENT
  Age: 16 Year
  Sex: Male
  Weight: 81.72 kg

DRUGS (1)
  1. TAMIFLU [Suspect]
     Active Substance: OSELTAMIVIR PHOSPHATE
     Indication: INFLUENZA
     Dosage: ONGOING:UNKNOWN, START DATE: 08/FEB/2018 OR 09/FEB/2018
     Route: 065
     Dates: start: 201802

REACTIONS (2)
  - Overdose [Unknown]
  - No adverse event [Unknown]

NARRATIVE: CASE EVENT DATE: 201802
